FAERS Safety Report 21038234 (Version 2)
Quarter: 2022Q3

REPORT INFORMATION
  Report Type: Spontaneous
  Country: HR (occurrence: HR)
  Receive Date: 20220704
  Receipt Date: 20220726
  Transmission Date: 20221026
  Serious: Yes (Life-Threatening, Other)
  Sender: FDA-Public Use
  Company Number: HR-AMGEN-HRVSP2022110166

PATIENT

DRUGS (12)
  1. PANITUMUMAB [Suspect]
     Active Substance: PANITUMUMAB
     Indication: Colorectal cancer
     Dosage: UNK
     Route: 065
  2. BEVACIZUMAB [Suspect]
     Active Substance: BEVACIZUMAB
     Indication: Colorectal cancer
     Dosage: UNK
     Route: 065
  3. CAPECITABINE\OXALIPLATIN [Suspect]
     Active Substance: CAPECITABINE\OXALIPLATIN
     Indication: Colorectal cancer
     Dosage: UNK
     Route: 065
  4. CAPECITABINE [Suspect]
     Active Substance: CAPECITABINE
     Indication: Colorectal cancer
     Dosage: UNK
     Route: 065
  5. OXALIPLATIN [Suspect]
     Active Substance: OXALIPLATIN
     Indication: Colorectal cancer
     Dosage: UNK
     Route: 065
  6. CAPECITABINE [Suspect]
     Active Substance: CAPECITABINE
     Indication: Colorectal cancer
     Dosage: UNK
     Route: 065
  7. FLUOROURACIL\IRINOTECAN\LEUCOVORIN [Suspect]
     Active Substance: FLUOROURACIL\IRINOTECAN\LEUCOVORIN
     Indication: Colorectal cancer
     Route: 065
  8. FLUOROURACIL\LEUCOVORIN CALCIUM\OXALIPLATIN [Suspect]
     Active Substance: FLUOROURACIL\LEUCOVORIN CALCIUM\OXALIPLATIN
     Indication: Colorectal cancer
     Dosage: UNK
     Route: 065
  9. CETUXIMAB [Suspect]
     Active Substance: CETUXIMAB
     Indication: Colorectal cancer
     Dosage: UNK
     Route: 065
  10. FLUOROURACIL [Suspect]
     Active Substance: FLUOROURACIL
     Indication: Colorectal cancer
     Dosage: UNK
     Route: 065
  11. LEUCOVORIN [Suspect]
     Active Substance: LEUCOVORIN
     Indication: Colorectal cancer
     Dosage: UNK
     Route: 065
  12. IRINOTECAN HYDROCHLORIDE [Suspect]
     Active Substance: IRINOTECAN HYDROCHLORIDE

REACTIONS (8)
  - Neutropenia [Unknown]
  - Vomiting [Unknown]
  - Abdominal pain [Unknown]
  - Palmar-plantar erythrodysaesthesia syndrome [Unknown]
  - Stomatitis [Unknown]
  - Fatigue [Unknown]
  - Infection [Unknown]
  - Diarrhoea [Unknown]
